FAERS Safety Report 10141695 (Version 2)
Quarter: 2014Q3

REPORT INFORMATION
  Report Type: Spontaneous
  Country: US (occurrence: US)
  Receive Date: 20140429
  Receipt Date: 20140718
  Transmission Date: 20150326
  Serious: Yes (Other)
  Sender: FDA-Public Use
  Company Number: US-BRISTOL-MYERS SQUIBB COMPANY-20656005

PATIENT
  Age: 8 Decade
  Sex: Female

DRUGS (1)
  1. COUMADIN [Suspect]
     Active Substance: WARFARIN SODIUM

REACTIONS (1)
  - Bedridden [Unknown]
